FAERS Safety Report 5673207-3 (Version None)
Quarter: 2008Q1

REPORT INFORMATION
  Report Type: 
  Country: None (occurrence: None)
  Receive Date: 20080319
  Receipt Date: 20080312
  Transmission Date: 20080703
  Serious: Yes (Disabling)
  Sender: FDA-Public Use
  Company Number: US-JNJFOC-20080303419

PATIENT
  Age: 45 Year
  Sex: Female
  Weight: 81.65 kg

DRUGS (6)
  1. LEVAQUIN [Suspect]
     Indication: URINARY TRACT INFECTION
     Route: 048
  2. SYNTHROID [Concomitant]
     Indication: HYPOTHYROIDISM
     Route: 048
  3. OMEGA 3 [Concomitant]
     Indication: NUTRITIONAL SUPPORT
     Route: 048
  4. VITAMIN B-12 [Concomitant]
     Indication: NUTRITIONAL SUPPORT
     Route: 048
  5. VITAMIN CAP [Concomitant]
     Indication: NUTRITIONAL SUPPORT
     Route: 048
  6. ADVIL [Concomitant]
     Indication: PAIN
     Route: 048

REACTIONS (11)
  - BACK PAIN [None]
  - BLOOD IMMUNOGLOBULIN G INCREASED [None]
  - FATIGUE [None]
  - MUSCLE TWITCHING [None]
  - MUSCULAR WEAKNESS [None]
  - NEUROPATHY PERIPHERAL [None]
  - PAIN [None]
  - SENSORY LOSS [None]
  - SEXUAL DYSFUNCTION [None]
  - SKIN WARM [None]
  - TENDON DISORDER [None]
